FAERS Safety Report 6882540-9 (Version None)
Quarter: 2010Q3

REPORT INFORMATION
  Report Type: 
  Country: None (occurrence: None)
  Receive Date: 20100727
  Receipt Date: 20100719
  Transmission Date: 20110219
  Serious: Yes (Hospitalization, Other)
  Sender: FDA-Public Use
  Company Number: RB-08903-2010

PATIENT
  Age: 58 Year
  Sex: Female

DRUGS (4)
  1. SUBOXONE [Suspect]
     Indication: PRODUCT USED FOR UNKNOWN INDICATION
  2. SUBUTEX [Suspect]
     Indication: DRUG DEPENDENCE
     Dosage: (3 MG BID SUBLINGUAL)
     Route: 060
     Dates: start: 20100101
  3. OPANA [Suspect]
     Indication: PRODUCT USED FOR UNKNOWN INDICATION
  4. KLONOPIN [Concomitant]

REACTIONS (36)
  - ANXIETY [None]
  - ARTHROPOD BITE [None]
  - BACK PAIN [None]
  - BEDRIDDEN [None]
  - CARPAL TUNNEL SYNDROME [None]
  - CELLULITIS [None]
  - CONDITION AGGRAVATED [None]
  - CONSTIPATION [None]
  - DECREASED APPETITE [None]
  - DIARRHOEA [None]
  - FATIGUE [None]
  - HYPERSENSITIVITY [None]
  - INSOMNIA [None]
  - INTENTIONAL SELF-INJURY [None]
  - IRRITABILITY [None]
  - MALAISE [None]
  - MANIA [None]
  - MIGRAINE [None]
  - MUSCLE SPASMS [None]
  - NAUSEA [None]
  - NERVOUSNESS [None]
  - OEDEMA [None]
  - OEDEMA PERIPHERAL [None]
  - ONYCHOCLASIS [None]
  - PARANOIA [None]
  - PYREXIA [None]
  - SCAB [None]
  - SCREAMING [None]
  - SOMNOLENCE [None]
  - SUICIDAL IDEATION [None]
  - TINNITUS [None]
  - TONGUE DISCOLOURATION [None]
  - UTERINE CYST [None]
  - VERTIGO [None]
  - VISUAL ACUITY REDUCED [None]
  - WITHDRAWAL SYNDROME [None]
